FAERS Safety Report 20111886 (Version 1)
Quarter: 2021Q4

REPORT INFORMATION
  Report Type: Report from Study
  Country: US (occurrence: ES)
  Receive Date: 20211125
  Receipt Date: 20211125
  Transmission Date: 20220303
  Serious: Yes (Death, Other)
  Sender: FDA-Public Use
  Company Number: US-SUN PHARMACEUTICAL INDUSTRIES LTD-2021R1-298960

PATIENT
  Age: 65 Year
  Sex: Female
  Weight: 59.9 kg

DRUGS (5)
  1. TEMOZOLOMIDE [Suspect]
     Active Substance: TEMOZOLOMIDE
     Indication: Glioblastoma
     Dosage: 125 MILLIGRAM, DAILY
     Route: 048
     Dates: start: 20210118, end: 20210222
  2. GLASDEGIB [Suspect]
     Active Substance: GLASDEGIB
     Indication: Glioblastoma
     Dosage: 75 MILLIGRAM, QD
     Route: 048
     Dates: start: 20210118, end: 20210222
  3. DEXAMETHASONE [Concomitant]
     Active Substance: DEXAMETHASONE
     Indication: Seizure
     Dosage: UNK
     Route: 065
     Dates: start: 20210407
  4. LEVETIRACETAM [Concomitant]
     Active Substance: LEVETIRACETAM
     Indication: Seizure
     Dosage: UNK
     Route: 065
     Dates: start: 2020
  5. LEVOTHYROXINE SODIUM [Concomitant]
     Active Substance: LEVOTHYROXINE SODIUM
     Indication: Hypothyroidism
     Dosage: UNK
     Route: 065

REACTIONS (4)
  - Neoplasm progression [Fatal]
  - Respiratory distress [Fatal]
  - Pancytopenia [Unknown]
  - Herpes virus infection [Unknown]
